FAERS Safety Report 9046757 (Version 1)
Quarter: 2013Q1

REPORT INFORMATION
  Report Type: Spontaneous
  Country: US (occurrence: None)
  Receive Date: 20130128
  Receipt Date: 20130128
  Transmission Date: 20140127
  Serious: No
  Sender: FDA-Public Use
  Company Number: None

PATIENT
  Age: 15 Year
  Sex: Female

DRUGS (1)
  1. SOLODYN [Suspect]
     Indication: ACNE
     Dates: start: 20101221

REACTIONS (4)
  - Aspartate aminotransferase increased [None]
  - Alanine aminotransferase increased [None]
  - Headache [None]
  - Epstein-Barr virus antibody positive [None]
